FAERS Safety Report 9091534 (Version 1)
Quarter: 2013Q1

REPORT INFORMATION
  Report Type: Spontaneous
  Country: US (occurrence: US)
  Receive Date: 20130131
  Receipt Date: 20130131
  Transmission Date: 20140127
  Serious: No
  Sender: FDA-Public Use
  Company Number: US-JNJFOC-20130111639

PATIENT
  Sex: Female
  Weight: 90.72 kg

DRUGS (4)
  1. DURAGESIC [Suspect]
     Indication: PAIN
     Route: 062
     Dates: start: 2003, end: 2009
  2. DURAGESIC [Suspect]
     Indication: PAIN
     Route: 062
     Dates: start: 2009
  3. UNKNOWN MEDICATION [Concomitant]
     Indication: CONVULSION
     Route: 065
     Dates: start: 1990
  4. UNKNOWN MEDICATION [Concomitant]
     Indication: PRODUCT USED FOR UNKNOWN INDICATION
     Route: 065
     Dates: start: 1990

REACTIONS (6)
  - Pain [Recovered/Resolved]
  - Adverse drug reaction [Recovered/Resolved]
  - Product quality issue [Not Recovered/Not Resolved]
  - Drug dose omission [Not Recovered/Not Resolved]
  - Product adhesion issue [Unknown]
  - Wrong technique in drug usage process [Unknown]
